FAERS Safety Report 6184948-6 (Version None)
Quarter: 2009Q2

REPORT INFORMATION
  Report Type: 
  Country: None (occurrence: None)
  Receive Date: 20090511
  Receipt Date: 20080411
  Transmission Date: 20091009
  Serious: No
  Sender: FDA-Public Use
  Company Number: A0718154A

PATIENT
  Age: 67 Year
  Sex: Female

DRUGS (12)
  1. RELAFEN [Suspect]
     Indication: DRUG USE FOR UNKNOWN INDICATION
     Route: 048
     Dates: start: 19980101
  2. LANTUS [Concomitant]
  3. ATENOLOL [Concomitant]
     Indication: BLOOD PRESSURE
     Dosage: 50MG PER DAY
     Route: 048
  4. DIOVAN [Concomitant]
     Indication: BLOOD PRESSURE
     Dosage: 320MG PER DAY
     Route: 048
  5. UNSPECIFIED MEDICATION [Concomitant]
     Indication: BLOOD PRESSURE
     Dosage: 25MG PER DAY
     Route: 048
  6. NORVASC [Concomitant]
     Indication: BLOOD PRESSURE
     Dosage: 25MG PER DAY
     Route: 048
  7. SYNTHROID [Concomitant]
  8. IODINE [Concomitant]
  9. TRAMADOL HCL [Concomitant]
     Indication: ARTHRITIS
  10. COLESTID [Concomitant]
  11. CALCIUM [Concomitant]
  12. MULTI-VITAMIN [Concomitant]

REACTIONS (1)
  - URTICARIA [None]
